FAERS Safety Report 13756433 (Version 1)
Quarter: 2017Q3

REPORT INFORMATION
  Report Type: Spontaneous
  Country: US (occurrence: US)
  Receive Date: 20170714
  Receipt Date: 20170714
  Transmission Date: 20171127
  Serious: No
  Sender: FDA-Public Use
  Company Number: GXBR2017US001734

PATIENT
  Sex: Female
  Weight: 45.35 kg

DRUGS (4)
  1. TIMOLOL GFS [Suspect]
     Active Substance: TIMOLOL MALEATE
     Indication: INTRAOCULAR PRESSURE TEST
     Dosage: ONE DROP TO BOTH EYES TWO TIMES PER DAY, BID
     Route: 047
     Dates: start: 201702
  2. ZIOPTAN [Concomitant]
     Active Substance: TAFLUPROST
     Indication: INTRAOCULAR PRESSURE TEST
     Dosage: ONE DROP IN EACH EYE AT BEDTIME, QHS
     Route: 047
  3. LISINOPRIL. [Concomitant]
     Active Substance: LISINOPRIL
     Indication: BLOOD PRESSURE ABNORMAL
     Dosage: 10 MG, QHS
     Route: 048
  4. XALATAN [Concomitant]
     Active Substance: LATANOPROST
     Indication: INTRAOCULAR PRESSURE TEST
     Dosage: ONE DROP IN EACH EYE AT BEDTIME, QHS
     Route: 047

REACTIONS (1)
  - Ocular hyperaemia [Not Recovered/Not Resolved]
